FAERS Safety Report 8492634-2 (Version None)
Quarter: 2012Q3

REPORT INFORMATION
  Report Type: 
  Country: None (occurrence: None)
  Receive Date: 20120706
  Receipt Date: 20120627
  Transmission Date: 20120928
  Serious: Yes (Other)
  Sender: FDA-Public Use
  Company Number: DE-VERTEX PHARMACEUTICALS INC.-000000000000001031

PATIENT
  Sex: Female

DRUGS (6)
  1. TELAPREVIR [Suspect]
     Dosage: DOSAGE FORM: TABLET
     Route: 048
     Dates: start: 20111206
  2. PEGASYS [Concomitant]
     Indication: HEPATITIS C
     Dosage: DOSAGE FORM: INJECTION
     Route: 058
  3. COPEGUS [Concomitant]
     Dosage: DOSAGE FORM: UNSPECIFIED
     Route: 048
  4. TELAPREVIR [Suspect]
     Indication: HEPATITIS C
     Dosage: DOSAGE FORM: TABLET
     Route: 048
  5. PEGASYS [Concomitant]
     Dosage: DOSAGE FORM: INJECTION
     Route: 058
     Dates: start: 20111206
  6. COPEGUS [Concomitant]
     Indication: HEPATITIS C
     Dosage: DOSAGE FORM: UNSPECIFIED
     Route: 048
     Dates: start: 20111206

REACTIONS (2)
  - ANAEMIA [None]
  - SKIN DISORDER [None]
